FAERS Safety Report 4269684-5 (Version None)
Quarter: 2004Q1

REPORT INFORMATION
  Report Type: 
  Country: None (occurrence: None)
  Receive Date: 20040112
  Receipt Date: 20031231
  Transmission Date: 20041129
  Serious: Yes (Death, Life-Threatening, Hospitalization)
  Sender: FDA-Public Use
  Company Number: GLIP20030006

PATIENT
  Age: 47 Year
  Sex: Male

DRUGS (9)
  1. GLIPIZIDE [Suspect]
     Dosage: PO
     Route: 048
     Dates: start: 20020101, end: 20020101
  2. METFORMIN HCL [Suspect]
     Dosage: PO
     Route: 048
     Dates: start: 20020101, end: 20020101
  3. ETHANOL [Suspect]
     Dosage: PO
     Route: 048
     Dates: start: 20020101, end: 20020101
  4. LISINOPRIL [Suspect]
     Dosage: PO
     Route: 048
     Dates: start: 20020101, end: 20020101
  5. PIOGLITAZONE HCL [Suspect]
     Dosage: PO
     Route: 048
     Dates: start: 20020101, end: 20020101
  6. CLOPIDOGREL [Suspect]
     Dosage: PO
     Route: 048
     Dates: start: 20020101, end: 20020101
  7. FLUOXETINE [Suspect]
     Dosage: PO
     Route: 048
     Dates: start: 20020101, end: 20020101
  8. NAPROXEN [Suspect]
     Dosage: PO
     Route: 048
     Dates: start: 20020101, end: 20020101
  9. SIMVASTATIN [Suspect]
     Dosage: PO
     Route: 048
     Dates: start: 20020101, end: 20020101

REACTIONS (13)
  - AGITATION [None]
  - ANION GAP INCREASED [None]
  - CARDIAC ARREST [None]
  - COMPLETED SUICIDE [None]
  - CONFUSIONAL STATE [None]
  - DIALYSIS [None]
  - HYPOGLYCAEMIA [None]
  - HYPOTENSION [None]
  - METABOLIC ACIDOSIS [None]
  - MULTIPLE DRUG OVERDOSE [None]
  - RESPIRATORY DISTRESS [None]
  - SELF INJURIOUS BEHAVIOUR [None]
  - SKIN LACERATION [None]
